FAERS Safety Report 6904529-3 (Version None)
Quarter: 2010Q3

REPORT INFORMATION
  Report Type: 
  Country: None (occurrence: None)
  Receive Date: 20100804
  Receipt Date: 20090608
  Transmission Date: 20110219
  Serious: Yes (Other)
  Sender: FDA-Public Use
  Company Number: US-PFIZER INC-2009204563

PATIENT
  Sex: Female
  Weight: 82.993 kg

DRUGS (5)
  1. LYRICA [Suspect]
     Indication: PAIN
     Dosage: 75 MG, 1X/DAY
     Dates: start: 20081001, end: 20090401
  2. LYRICA [Suspect]
     Indication: FIBROMYALGIA
  3. HYDROCODONE [Concomitant]
     Dosage: UNK
  4. KLONOPIN [Concomitant]
     Dosage: UNK
  5. PREMARIN [Concomitant]
     Dosage: UNK

REACTIONS (5)
  - ANXIETY [None]
  - DRUG INEFFECTIVE [None]
  - MUSCLE DISORDER [None]
  - PAIN [None]
  - THINKING ABNORMAL [None]
